FAERS Safety Report 5490686-5 (Version None)
Quarter: 2007Q4

REPORT INFORMATION
  Report Type: 
  Country: None (occurrence: None)
  Receive Date: 20071019
  Receipt Date: 20071012
  Transmission Date: 20080405
  Serious: Yes (Other)
  Sender: FDA-Public Use
  Company Number: CA-ASTRAZENECA-2007UW23932

PATIENT
  Age: 46 Year
  Sex: Female

DRUGS (3)
  1. SEROQUEL [Suspect]
     Route: 048
  2. RISPERDAL [Concomitant]
  3. SYNTHROID [Concomitant]

REACTIONS (6)
  - BREAST ENLARGEMENT [None]
  - GENITAL PAIN [None]
  - HEART RATE IRREGULAR [None]
  - HYPERHIDROSIS [None]
  - ORTHOSTATIC HYPOTENSION [None]
  - PYREXIA [None]
